FAERS Safety Report 8159174-1 (Version None)
Quarter: 2012Q1

REPORT INFORMATION
  Report Type: 
  Country: None (occurrence: None)
  Receive Date: 20120223
  Receipt Date: 20120217
  Transmission Date: 20120608
  Serious: Yes (Other)
  Sender: FDA-Public Use
  Company Number: JP-JNJFOC-20120202517

PATIENT
  Age: 78 Year
  Sex: Female

DRUGS (7)
  1. CELECOXIB [Suspect]
     Indication: PAIN
     Route: 048
     Dates: start: 20111125
  2. LANSOPRAZOLE [Concomitant]
     Indication: PROPHYLAXIS
     Route: 048
     Dates: start: 20111229
  3. MAGMITT [Concomitant]
     Indication: CONSTIPATION
     Route: 048
     Dates: start: 20111121
  4. PANTOSIN [Concomitant]
     Indication: CONSTIPATION
     Route: 048
     Dates: start: 20111121
  5. TRAMADOL HYDROCHLORIDE AND ACETAMINOPHEN [Suspect]
     Indication: PAIN
     Dosage: 1 PER DAY
     Route: 048
     Dates: start: 20120105, end: 20120202
  6. MOTILIUM [Concomitant]
     Indication: ANTIEMETIC SUPPORTIVE CARE
     Route: 048
     Dates: start: 20120105
  7. DIAZEPAM [Concomitant]
     Indication: PROPHYLAXIS
     Route: 048
     Dates: start: 20111121

REACTIONS (3)
  - PLATELET COUNT DECREASED [None]
  - EOSINOPHIL COUNT INCREASED [None]
  - WHITE BLOOD CELL COUNT DECREASED [None]
